FAERS Safety Report 8968124 (Version 3)
Quarter: 2013Q1

REPORT INFORMATION
  Report Type: Report from Study
  Country: US (occurrence: US)
  Receive Date: 20121217
  Receipt Date: 20130315
  Transmission Date: 20140127
  Serious: No
  Sender: FDA-Public Use
  Company Number: US-VERTEX PHARMACEUTICALS INC.-2012-026175

PATIENT
  Age: 64 Year
  Sex: Male
  Weight: 64 kg

DRUGS (7)
  1. VX-950 (TELAPREVIR) [Suspect]
     Indication: HEPATITIS C
     Dosage: 750 MG, TID
     Route: 048
     Dates: start: 20120730
  2. PEGASYS [Suspect]
     Indication: HEPATITIS C
     Dosage: 180 ?G, QW
     Route: 058
     Dates: start: 20120730
  3. RIBASPHERE [Suspect]
     Indication: HEPATITIS C
     Dosage: 400 MG, BID
     Route: 048
     Dates: start: 20120730
  4. LASIX [Concomitant]
     Dosage: UNK UNK, QD
  5. FLOMAX [Concomitant]
     Dosage: UNK, QD
  6. VITAMIN D [Concomitant]
  7. AZOR [Concomitant]
     Dosage: 5-20 MG

REACTIONS (8)
  - Fluid retention [Unknown]
  - Abdominal distension [Unknown]
  - Joint swelling [Unknown]
  - Decreased appetite [Unknown]
  - Weight decreased [Unknown]
  - Alopecia [Unknown]
  - Fatigue [Unknown]
  - Dysgeusia [Unknown]
